FAERS Safety Report 7312948-9 (Version None)
Quarter: 2011Q1

REPORT INFORMATION
  Report Type: 
  Country: None (occurrence: None)
  Receive Date: 20110224
  Receipt Date: 20110211
  Transmission Date: 20110831
  Serious: Yes (Life-Threatening, Hospitalization)
  Sender: FDA-Public Use
  Company Number: NL-GENENTECH-313898

PATIENT
  Sex: Male
  Weight: 80 kg

DRUGS (1)
  1. RANIBIZUMAB [Suspect]
     Indication: DIABETIC RETINAL OEDEMA
     Dosage: 500 A?G, UNK
     Route: 031
     Dates: start: 20110127

REACTIONS (3)
  - PNEUMONIA [None]
  - MYOCARDIAL INFARCTION [None]
  - CONCOMITANT DISEASE PROGRESSION [None]
